FAERS Safety Report 14992465 (Version 1)
Quarter: 2018Q2

REPORT INFORMATION
  Report Type: Spontaneous
  Country: DE (occurrence: DE)
  Receive Date: 20180609
  Receipt Date: 20180609
  Transmission Date: 20180711
  Serious: Yes (Hospitalization)
  Sender: FDA-Public Use
  Company Number: DE-TEVA-2018-DE-903216

PATIENT
  Age: 87 Year
  Sex: Female

DRUGS (3)
  1. METOPROLOL. [Suspect]
     Active Substance: METOPROLOL
     Route: 065
  2. TORASEMID [Interacting]
     Active Substance: TORSEMIDE
     Dosage: 1-0.5-0-0
     Route: 065
  3. XARELTO [Concomitant]
     Active Substance: RIVAROXABAN
     Dosage: 2-0-0-0

REACTIONS (8)
  - Medication monitoring error [Unknown]
  - Syncope [Unknown]
  - Orthostatic intolerance [Unknown]
  - Fall [Unknown]
  - Drug prescribing error [Unknown]
  - Medication error [Unknown]
  - Labelled drug-drug interaction medication error [Unknown]
  - Fracture [Unknown]
